FAERS Safety Report 4657121-8 (Version None)
Quarter: 2005Q2

REPORT INFORMATION
  Report Type: 
  Country: None (occurrence: None)
  Receive Date: 20050506
  Receipt Date: 20050422
  Transmission Date: 20051028
  Serious: Yes (Hospitalization, Other)
  Sender: FDA-Public Use
  Company Number: 2005042638

PATIENT
  Sex: Female
  Weight: 94.3482 kg

DRUGS (7)
  1. NEURONTIN [Suspect]
     Indication: BIPOLAR DISORDER
     Dosage: 400 MG (100 MG, 4 IN 1 D), ORAL
     Route: 048
     Dates: end: 20050301
  2. XANAX [Suspect]
     Indication: ANXIETY
     Dosage: (0.25 MG), ORAL
     Route: 048
     Dates: end: 20050301
  3. HYDROXYZINE PAMOATE [Suspect]
     Indication: ECZEMA
     Dosage: ORAL
     Route: 048
     Dates: end: 20050301
  4. QUETIAPINE FUMARATE [Suspect]
     Indication: ILL-DEFINED DISORDER
     Dates: start: 20050101
  5. PROPYLTHIOURACIL [Concomitant]
  6. LISINOPRIL [Concomitant]
  7. LEKOVIT CA (CALCIUM CARBONATE, COLECALCIFEROL) [Concomitant]

REACTIONS (6)
  - DRUG INEFFECTIVE [None]
  - ECZEMA [None]
  - INSOMNIA [None]
  - MENTAL DISORDER [None]
  - POST-TRAUMATIC STRESS DISORDER [None]
  - WEIGHT FLUCTUATION [None]
